FAERS Safety Report 13671871 (Version 1)
Quarter: 2017Q2

REPORT INFORMATION
  Report Type: Spontaneous
  Country: US (occurrence: US)
  Receive Date: 20170620
  Receipt Date: 20170620
  Transmission Date: 20170830
  Serious: No
  Sender: FDA-Public Use
  Company Number: None

PATIENT
  Age: 38 Year
  Sex: Female
  Weight: 68.1 kg

DRUGS (1)
  1. BUPRENORPHINE/ NALOXONE TABLETS, 8MG/2MG [Suspect]
     Active Substance: BUPRENORPHINE HYDROCHLORIDE\NALOXONE HYDROCHLORIDE
     Indication: DRUG USE DISORDER
     Route: 060
     Dates: start: 20170525, end: 20170618

REACTIONS (4)
  - Glossitis [None]
  - Tongue erythema [None]
  - Tongue discomfort [None]
  - Tongue blistering [None]

NARRATIVE: CASE EVENT DATE: 20170524
